FAERS Safety Report 5226567-1 (Version None)
Quarter: 2007Q1

REPORT INFORMATION
  Report Type: 
  Country: None (occurrence: None)
  Receive Date: 20061201
  Receipt Date: 20060912
  Transmission Date: 20070707
  Serious: No
  Sender: FDA-Public Use
  Company Number: US200609005746

PATIENT
  Sex: Male

DRUGS (5)
  1. CYMBALTA [Suspect]
     Dosage: SEE IMAGE
     Dates: start: 20060224, end: 20060227
  2. CYMBALTA [Suspect]
     Dosage: SEE IMAGE
     Dates: start: 20060305, end: 20060311
  3. DETROL [Concomitant]
  4. RITALIN [Concomitant]
  5. PSEUDOEPHEDRINE HCL [Concomitant]

REACTIONS (5)
  - ABDOMINAL DISTENSION [None]
  - FLATULENCE [None]
  - POLYDIPSIA [None]
  - POLYURIA [None]
  - URINARY INCONTINENCE [None]
